FAERS Safety Report 12532117 (Version 1)
Quarter: 2016Q3

REPORT INFORMATION
  Report Type: Spontaneous
  Country: GB (occurrence: GB)
  Receive Date: 20160706
  Receipt Date: 20160706
  Transmission Date: 20161109
  Serious: Yes (Other)
  Sender: FDA-Public Use
  Company Number: GB-WATSON-2016-14111

PATIENT
  Age: 43 Year
  Sex: Male
  Weight: 57 kg

DRUGS (2)
  1. PRAMIPEXOLE. [Concomitant]
     Active Substance: PRAMIPEXOLE
     Indication: PRODUCT USED FOR UNKNOWN INDICATION
     Dosage: 1 DF, QHS (2-3 HOURS BEFORE BEDTIME)
     Route: 065
     Dates: start: 20160610
  2. ROPINIROLE (UNKNOWN) [Suspect]
     Active Substance: ROPINIROLE
     Indication: PRODUCT USED FOR UNKNOWN INDICATION
     Dosage: UNK
     Route: 065
     Dates: start: 20160223

REACTIONS (2)
  - Hypotrichosis [Unknown]
  - Alopecia [Unknown]

NARRATIVE: CASE EVENT DATE: 20160610
